FAERS Safety Report 11048820 (Version 2)
Quarter: 2015Q2

REPORT INFORMATION
  Report Type: Spontaneous
  Country: US (occurrence: US)
  Receive Date: 20150420
  Receipt Date: 20150507
  Transmission Date: 20150821
  Serious: No
  Sender: FDA-Public Use
  Company Number: US-PFIZER INC-2015132673

PATIENT
  Age: 76 Year
  Sex: Female
  Weight: 59 kg

DRUGS (13)
  1. BENICAR [Concomitant]
     Active Substance: OLMESARTAN MEDOXOMIL
     Indication: HYPERTENSION
     Dosage: 40 MG, UNK
  2. METHADONE [Suspect]
     Active Substance: METHADONE HYDROCHLORIDE
     Indication: PAIN
     Dosage: 5 MG
  3. PROTONIX [Concomitant]
     Active Substance: PANTOPRAZOLE SODIUM
     Indication: ULCER
  4. CITRACAL [Concomitant]
     Active Substance: CALCIUM CITRATE
     Indication: MINERAL SUPPLEMENTATION
     Dosage: UNK
  5. URSODIOL. [Concomitant]
     Active Substance: URSODIOL
     Indication: CHOLELITHIASIS
  6. PROTONIX [Concomitant]
     Active Substance: PANTOPRAZOLE SODIUM
     Indication: ABDOMINAL DISCOMFORT
     Dosage: 40 MG, 2X/DAY
  7. AMLODIPINE [Concomitant]
     Active Substance: AMLODIPINE BESYLATE
     Dosage: 5 MG, 1X/DAY
  8. NORVASC [Concomitant]
     Active Substance: AMLODIPINE BESYLATE
     Dosage: 5 MG, 1X/DAY
  9. ASPIRIN. [Concomitant]
     Active Substance: ASPIRIN
     Dosage: UNK
  10. URSODIOL. [Concomitant]
     Active Substance: URSODIOL
     Indication: CHOLECYSTECTOMY
     Dosage: 500 MG, 2X/DAY
  11. PANTOPRAZOLE [Concomitant]
     Active Substance: PANTOPRAZOLE SODIUM
     Indication: ABDOMINAL DISCOMFORT
     Dosage: 40 MG, 2X/DAY
  12. PANTOPRAZOLE [Concomitant]
     Active Substance: PANTOPRAZOLE SODIUM
     Indication: ULCER
  13. XELJANZ [Suspect]
     Active Substance: TOFACITINIB CITRATE
     Indication: RHEUMATOID ARTHRITIS
     Dosage: 5 MG, 2X/DAY
     Dates: start: 2013

REACTIONS (3)
  - Pain [Unknown]
  - Pain in extremity [Unknown]
  - Arthralgia [Unknown]
